FAERS Safety Report 5636226-9 (Version None)
Quarter: 2008Q1

REPORT INFORMATION
  Report Type: 
  Country: None (occurrence: None)
  Receive Date: 20080215
  Receipt Date: 20080215
  Transmission Date: 20080703
  Serious: No
  Sender: FDA-Public Use
  Company Number: None

PATIENT
  Sex: Male

DRUGS (1)
  1. AMOXICILLIN [Suspect]
     Dosage: 400MG/5MLS 1 TSP (5MLS) BID X 10-14 DAYS ORAL
     Route: 048
     Dates: start: 20080205, end: 20080214

REACTIONS (1)
  - RASH MACULO-PAPULAR [None]
